FAERS Safety Report 13681221 (Version 13)
Quarter: 2021Q1

REPORT INFORMATION
  Report Type: Spontaneous
  Country: JP (occurrence: JP)
  Receive Date: 20170623
  Receipt Date: 20210327
  Transmission Date: 20210419
  Serious: Yes (Hospitalization, Other)
  Sender: FDA-Public Use
  Company Number: JP-UNITED THERAPEUTICS-UNT-2017-009354

PATIENT
  Age: 27 Year
  Sex: Female
  Weight: 56 kg

DRUGS (30)
  1. TRAMCET [Concomitant]
     Active Substance: ACETAMINOPHEN\TRAMADOL
     Indication: PROPHYLAXIS
     Dosage: UNK
     Route: 048
     Dates: start: 20150805, end: 20170511
  2. UPTRAVI [Concomitant]
     Active Substance: SELEXIPAG
     Indication: PULMONARY ARTERIAL HYPERTENSION
     Dosage: UNK UNK, Q12H
     Route: 048
     Dates: start: 20170615, end: 20191206
  3. VENTAVIS [Concomitant]
     Active Substance: ILOPROST
     Indication: PULMONARY ARTERIAL HYPERTENSION
     Dosage: UNK
     Dates: start: 20161102, end: 20170509
  4. MYSER [Concomitant]
     Indication: PROPHYLAXIS
     Dosage: UNK
     Route: 061
  5. CARELOAD [Concomitant]
     Active Substance: BERAPROST SODIUM
     Indication: PULMONARY ARTERIAL HYPERTENSION
     Dosage: UNK
     Route: 048
     Dates: start: 201507, end: 20150805
  6. HIRUDOID [Concomitant]
     Active Substance: GLYCOSAMINOGLYCANS
     Indication: ASTEATOSIS
     Dosage: UNK
     Route: 061
     Dates: start: 20160624
  7. CRAVIT [Concomitant]
     Active Substance: LEVOFLOXACIN
     Indication: PROPHYLAXIS
     Dosage: UNK
     Route: 048
     Dates: start: 20170721, end: 20171103
  8. REMODULIN [Suspect]
     Active Substance: TREPROSTINIL
     Dosage: 0.040 ?G/KG, CONTINUING
     Route: 041
     Dates: start: 20170627
  9. REMODULIN [Suspect]
     Active Substance: TREPROSTINIL
     Dosage: 0.040 ?G/KG, CONTINUING
     Route: 041
  10. TRACLEER [Concomitant]
     Active Substance: BOSENTAN
     Indication: PULMONARY ARTERIAL HYPERTENSION
     Dosage: UNK
     Route: 048
     Dates: start: 201507, end: 20160626
  11. LANSOPRAZOLE. [Concomitant]
     Active Substance: LANSOPRAZOLE
     Indication: GASTRITIS PROPHYLAXIS
     Dosage: 15 MG, QD
     Route: 048
  12. PRIVINA [Concomitant]
     Active Substance: NAPHAZOLINE NITRATE
     Indication: RHINITIS
     Route: 045
  13. REMODULIN [Suspect]
     Active Substance: TREPROSTINIL
     Dosage: 0.072 ?G/KG, CONTINUING
     Route: 041
     Dates: start: 20170614
  14. OPSUMIT [Concomitant]
     Active Substance: MACITENTAN
     Dosage: UNK
     Route: 048
     Dates: start: 20160627
  15. FERRUM [Concomitant]
     Active Substance: FERROUS FUMARATE
     Indication: IRON DEFICIENCY ANAEMIA
     Dosage: 100 MG, QD
     Route: 048
  16. LOXONIN [Concomitant]
     Active Substance: LOXOPROFEN SODIUM
     Indication: BACK PAIN
     Dosage: UNK
     Route: 062
     Dates: start: 20150823, end: 20150925
  17. GENTACIN [Concomitant]
     Active Substance: GENTAMICIN SULFATE
     Indication: PROPHYLAXIS
     Route: 061
  18. REMODULIN [Suspect]
     Active Substance: TREPROSTINIL
     Dosage: 0.0408 ?G/KG, CONTINUING
     Route: 041
     Dates: start: 201706
  19. ADCIRCA [Concomitant]
     Active Substance: TADALAFIL
     Indication: PULMONARY ARTERIAL HYPERTENSION
     Dosage: 40 MG, QD
     Route: 048
     Dates: start: 201507
  20. FERRUM [Concomitant]
     Active Substance: FERROUS FUMARATE
     Dosage: UNK
     Route: 048
     Dates: start: 20160520
  21. RUPAFIN [Concomitant]
     Active Substance: RUPATADINE FUMARATE
     Indication: PRODUCT USED FOR UNKNOWN INDICATION
     Dosage: UNK
     Route: 048
     Dates: start: 20190712
  22. REMODULIN [Suspect]
     Active Substance: TREPROSTINIL
     Dosage: 0.050 ?G/KG, CONTINUING
     Route: 041
     Dates: start: 20170613
  23. LANSOPRAZOLE. [Concomitant]
     Active Substance: LANSOPRAZOLE
     Indication: GASTROOESOPHAGEAL REFLUX DISEASE
     Dosage: UNK
     Route: 048
     Dates: start: 20150828
  24. OPSUMIT [Concomitant]
     Active Substance: MACITENTAN
     Indication: PULMONARY ARTERIAL HYPERTENSION
     Dosage: 10 MG, QD
     Route: 048
  25. SELTOUCH [Concomitant]
     Active Substance: FELBINAC
     Indication: BACK PAIN
     Dosage: UNK
     Route: 062
     Dates: start: 20160622, end: 20170106
  26. REMODULIN [Suspect]
     Active Substance: TREPROSTINIL
     Indication: PULMONARY ARTERIAL HYPERTENSION
     Dosage: 0.072 ?G/KG, CONTINUING
     Route: 041
     Dates: start: 20170510
  27. REMODULIN [Suspect]
     Active Substance: TREPROSTINIL
     Dosage: 0.060 ?G/KG, CONTINUING
     Route: 041
     Dates: start: 20170620
  28. DICLOFENAC NA [Concomitant]
     Active Substance: DICLOFENAC SODIUM
     Indication: PRODUCT USED FOR UNKNOWN INDICATION
     Dosage: UNK
     Route: 065
     Dates: start: 20150806, end: 20150806
  29. FEXOFENADINE HYDROCHLORIDE. [Concomitant]
     Active Substance: FEXOFENADINE HYDROCHLORIDE
     Indication: RASH
     Dosage: 60 MG, BID
     Route: 048
     Dates: start: 20170513
  30. REMODULIN [Suspect]
     Active Substance: TREPROSTINIL
     Dosage: UNK UNK, CONTINUING (DOSE DECREASED)
     Route: 041
     Dates: start: 20170615

REACTIONS (9)
  - Vascular device infection [Recovering/Resolving]
  - Injection site hypersensitivity [Recovering/Resolving]
  - Device issue [Unknown]
  - Staphylococcal infection [Recovered/Resolved]
  - Chest discomfort [Recovered/Resolved]
  - Device related infection [Recovered/Resolved]
  - Injection site erosion [Recovering/Resolving]
  - Dermatitis allergic [Recovered/Resolved]
  - Vascular device infection [Recovering/Resolving]

NARRATIVE: CASE EVENT DATE: 20170513
